FAERS Safety Report 7917304-8 (Version None)
Quarter: 2011Q4

REPORT INFORMATION
  Report Type: 
  Country: None (occurrence: None)
  Receive Date: 20111114
  Receipt Date: 20111107
  Transmission Date: 20120403
  Serious: Yes (Hospitalization)
  Sender: FDA-Public Use
  Company Number: 2011SP052260

PATIENT
  Age: 50 Year
  Sex: Male
  Weight: 61 kg

DRUGS (6)
  1. REYATAZ [Concomitant]
  2. VIRAFERONPEG [Suspect]
     Indication: HEPATITIS C
     Dosage: 0.5 ML;QW;
     Dates: start: 20110909
  3. BOCEPREVIR (SCH-503034) [Suspect]
     Indication: HEPATITIS C
     Dosage: 800 MG;TID;
     Dates: start: 20111006
  4. REBETOL [Suspect]
     Indication: HEPATITIS C
     Dosage: 400 MG;BID;
     Dates: start: 20110909
  5. NORVIR [Concomitant]
  6. TRUVADA [Concomitant]

REACTIONS (1)
  - ERYSIPELAS [None]
